FAERS Safety Report 10087295 (Version 1)
Quarter: 2014Q2

REPORT INFORMATION
  Report Type: Spontaneous
  Country: PL (occurrence: PL)
  Receive Date: 20140418
  Receipt Date: 20140418
  Transmission Date: 20141212
  Serious: Yes (Other)
  Sender: FDA-Public Use
  Company Number: PL-B.I. PHARMACEUTICALS,INC./RIDGEFIELD-2014-BI-16809PN

PATIENT
  Age: 58 Year
  Sex: Female
  Weight: 79 kg

DRUGS (6)
  1. MOVALIS [Suspect]
     Indication: SCIATICA
     Dosage: 15 MG
     Route: 030
     Dates: start: 20131119, end: 20131122
  2. MOVALIS [Suspect]
     Indication: SPINAL OSTEOARTHRITIS
  3. MOVALIS [Suspect]
     Indication: SPINAL OSTEOARTHRITIS
  4. CARVETREND 6,25/ CARVEDILOL [Concomitant]
     Dosage: STRENGTH: 6.25
     Route: 065
  5. VANATEX HCT 80+12.5/ VALSARTAN + HYDROCHLOROTHIAZIDE [Concomitant]
     Dosage: STRENGTH: 80 + 12.5
     Route: 065
  6. PREWENIT/ FOLIC ACID + CYANOCOBALAMIN + PYRIDOXINE [Concomitant]
     Indication: NUTRITIONAL SUPPLEMENTATION
     Route: 065

REACTIONS (6)
  - Asthenia [Recovered/Resolved]
  - Dysgeusia [Recovered/Resolved]
  - Throat tightness [Recovered/Resolved]
  - Burn oesophageal [Recovered/Resolved]
  - Nausea [Recovered/Resolved]
  - Dyspepsia [Recovered/Resolved]
